FAERS Safety Report 15953789 (Version 3)
Quarter: 2019Q2

REPORT INFORMATION
  Report Type: Spontaneous
  Country: US (occurrence: US)
  Receive Date: 20190212
  Receipt Date: 20190417
  Transmission Date: 20190711
  Serious: No
  Sender: FDA-Public Use
  Company Number: US-ASTRAZENECA-2019SE12275

PATIENT
  Age: 724 Month
  Sex: Female
  Weight: 143.8 kg

DRUGS (1)
  1. BYDUREON BCISE [Suspect]
     Active Substance: EXENATIDE
     Indication: DIABETES MELLITUS
     Route: 058
     Dates: start: 201812

REACTIONS (9)
  - Injection site mass [Recovering/Resolving]
  - Nausea [Unknown]
  - Product dose omission [Unknown]
  - Device leakage [Unknown]
  - Needle track marks [Unknown]
  - Injection site pruritus [Unknown]
  - Dizziness [Unknown]
  - Device issue [Unknown]
  - Product use issue [Unknown]

NARRATIVE: CASE EVENT DATE: 201812
